FAERS Safety Report 6933677-7 (Version None)
Quarter: 2010Q3

REPORT INFORMATION
  Report Type: 
  Country: None (occurrence: None)
  Receive Date: 20100820
  Receipt Date: 20100812
  Transmission Date: 20110219
  Serious: Yes (Other)
  Sender: FDA-Public Use
  Company Number: US-PFIZER INC-2010102294

PATIENT
  Sex: Male
  Weight: 93 kg

DRUGS (4)
  1. QUINAPRIL HCL [Suspect]
     Indication: HYPERTENSION
     Dosage: 25 MG, DAILY
     Route: 048
     Dates: start: 20060101, end: 20090901
  2. AMITRIPTYLINE [Concomitant]
     Dosage: 30 MG, DAILY
  3. METFORMIN [Concomitant]
     Dosage: 1000 MG, UNK
  4. GLYBURIDE [Concomitant]
     Dosage: 5 MG, UNK

REACTIONS (3)
  - DRUG HYPERSENSITIVITY [None]
  - FOOD ALLERGY [None]
  - JOINT INJURY [None]
